FAERS Safety Report 8372451-4 (Version None)
Quarter: 2012Q2

REPORT INFORMATION
  Report Type: 
  Country: None (occurrence: None)
  Receive Date: 20120521
  Receipt Date: 20120509
  Transmission Date: 20120825
  Serious: Yes (Hospitalization)
  Sender: FDA-Public Use
  Company Number: PR-VERTEX PHARMACEUTICALS INC.-AE-2012-006784

PATIENT
  Sex: Male
  Weight: 78.542 kg

DRUGS (5)
  1. PEGASYS [Concomitant]
     Indication: HEPATITIS C
     Route: 058
     Dates: start: 20120413, end: 20120423
  2. RIBAVIRIN [Concomitant]
     Indication: HEPATITIS C
     Route: 048
     Dates: start: 20120413, end: 20120420
  3. INCIVEK [Suspect]
     Indication: HEPATITIS C
     Route: 048
     Dates: start: 20120413, end: 20120423
  4. LANTUS [Concomitant]
  5. HUMALOG 75/30 [Concomitant]

REACTIONS (15)
  - DIARRHOEA [None]
  - PLATELET COUNT DECREASED [None]
  - BLOOD POTASSIUM INCREASED [None]
  - ASTHENIA [None]
  - WEIGHT DECREASED [None]
  - ANORECTAL DISCOMFORT [None]
  - RECTAL HAEMORRHAGE [None]
  - HEPATIC CIRRHOSIS [None]
  - BLOOD UREA INCREASED [None]
  - DEHYDRATION [None]
  - HYPOTENSION [None]
  - PAIN IN EXTREMITY [None]
  - ANAEMIA [None]
  - COUGH [None]
  - DEPRESSION [None]
